FAERS Safety Report 17394783 (Version 1)
Quarter: 2020Q1

REPORT INFORMATION
  Report Type: Spontaneous
  Country: US (occurrence: US)
  Receive Date: 20200124
  Receipt Date: 20200124
  Transmission Date: 20200409
  Serious: No
  Sender: FDA-Public Use
  Company Number: None

PATIENT
  Age: 43 Year
  Sex: Female

DRUGS (1)
  1. REPATHA [Suspect]
     Active Substance: EVOLOCUMAB
     Indication: HYPERLIPIDAEMIA
     Route: 058
     Dates: start: 201904

REACTIONS (6)
  - Vitamin D decreased [None]
  - Dizziness [None]
  - Blood potassium decreased [None]
  - Hepatic enzyme increased [None]
  - Presyncope [None]
  - Vomiting [None]

NARRATIVE: CASE EVENT DATE: 20200124
